FAERS Safety Report 17948697 (Version 5)
Quarter: 2020Q3

REPORT INFORMATION
  Report Type: Spontaneous
  Country: PL (occurrence: PL)
  Receive Date: 20200626
  Receipt Date: 20200907
  Transmission Date: 20201103
  Serious: Yes (Hospitalization, Other)
  Sender: FDA-Public Use
  Company Number: PL-ACCORD-186789

PATIENT
  Age: 42 Year
  Sex: Female

DRUGS (11)
  1. QUETIAPINE. [Suspect]
     Active Substance: QUETIAPINE
     Indication: PRODUCT USED FOR UNKNOWN INDICATION
     Dosage: AT NIGHT?25 MG, QD, BEFORE SLEEP
     Route: 048
  2. MORPHINE [Interacting]
     Active Substance: MORPHINE
     Indication: PRODUCT USED FOR UNKNOWN INDICATION
     Dosage: PROLONGED?RELEASE TABLET
     Route: 048
  3. METOCLOPRAMIDE. [Concomitant]
     Active Substance: METOCLOPRAMIDE
  4. DULOXETINE. [Interacting]
     Active Substance: DULOXETINE
     Indication: PRODUCT USED FOR UNKNOWN INDICATION
     Route: 048
  5. PERINDOPRIL/AMLODIPINE [Interacting]
     Active Substance: AMLODIPINE\PERINDOPRIL
     Indication: HYPERTENSION
     Dosage: DOSE OF 10 MG / 10 MG
     Route: 048
  6. MIDAZOLAM. [Concomitant]
     Active Substance: MIDAZOLAM
  7. DIMENHYDRINATE. [Concomitant]
     Active Substance: DIMENHYDRINATE
  8. OLANZAPINE. [Interacting]
     Active Substance: OLANZAPINE
     Indication: ANTIEMETIC SUPPORTIVE CARE
     Dosage: INCREASED TO 10 MG / D
     Route: 048
  9. CIPROFLOXACIN. [Interacting]
     Active Substance: CIPROFLOXACIN
     Indication: PALLIATIVE CARE
     Dosage: 2 X 500 MG P.O.
     Route: 048
  10. PREGABALIN. [Interacting]
     Active Substance: PREGABALIN
     Indication: PRODUCT USED FOR UNKNOWN INDICATION
     Dosage: 300 MG, QD
     Route: 048
  11. DEXAMETHASONE. [Concomitant]
     Active Substance: DEXAMETHASONE

REACTIONS (9)
  - Tinnitus [Not Recovered/Not Resolved]
  - Urinary retention [Not Recovered/Not Resolved]
  - Restlessness [Unknown]
  - Nausea [Recovering/Resolving]
  - Vomiting [Not Recovered/Not Resolved]
  - Paraesthesia [Not Recovered/Not Resolved]
  - Anxiety [Not Recovered/Not Resolved]
  - Drug interaction [Unknown]
  - Thirst [Not Recovered/Not Resolved]
